FAERS Safety Report 24106063 (Version 1)
Quarter: 2024Q3

REPORT INFORMATION
  Report Type: Spontaneous
  Country: JP (occurrence: JP)
  Receive Date: 20240717
  Receipt Date: 20240717
  Transmission Date: 20241017
  Serious: Yes (Death, Other)
  Sender: BRISTOL MYERS SQUIBB
  Company Number: JP-TAIHO-2024-006720

PATIENT

DRUGS (2)
  1. ABRAXANE [Suspect]
     Active Substance: PACLITAXEL
     Indication: Product used for unknown indication
     Route: 041
  2. CYRAMZA [Concomitant]
     Active Substance: RAMUCIRUMAB
     Indication: Product used for unknown indication
     Route: 051

REACTIONS (2)
  - Embolism [Fatal]
  - Cerebral haemorrhage [Fatal]
